FAERS Safety Report 5584868-1 (Version None)
Quarter: 2008Q1

REPORT INFORMATION
  Report Type: 
  Country: None (occurrence: None)
  Receive Date: 20080104
  Receipt Date: 20071226
  Transmission Date: 20080703
  Serious: Yes (Hospitalization)
  Sender: FDA-Public Use
  Company Number: 163-21880-07121431

PATIENT
  Age: 69 Year
  Sex: Male

DRUGS (1)
  1. REVLIMID [Suspect]
     Indication: MULTIPLE MYELOMA
     Dosage: 5 MG, DAILY FOR 3 WEEKS ON AND THEN 1 WEEK OFF, ORAL
     Route: 048
     Dates: start: 20070911, end: 20071209

REACTIONS (6)
  - DYSPNOEA [None]
  - FATIGUE [None]
  - LIP OEDEMA [None]
  - LOCALISED OEDEMA [None]
  - RASH PRURITIC [None]
  - SWELLING FACE [None]
